FAERS Safety Report 8180332-4 (Version None)
Quarter: 2012Q1

REPORT INFORMATION
  Report Type: 
  Country: None (occurrence: None)
  Receive Date: 20120229
  Receipt Date: 20120224
  Transmission Date: 20120608
  Serious: Yes (Hospitalization, Other)
  Sender: FDA-Public Use
  Company Number: CL-392-2012

PATIENT
  Age: 72 Year
  Sex: Male

DRUGS (4)
  1. ASPIRIN [Suspect]
  2. AMLODIPINE [Suspect]
     Indication: ATRIAL FIBRILLATION
     Dosage: 200MG OD
  3. HYDROCHLOROTHIAZIDE [Suspect]
  4. FELODIPINE [Suspect]

REACTIONS (3)
  - PULMONARY HYPERTENSION [None]
  - LEFT VENTRICULAR HYPERTROPHY [None]
  - HEPATIC CIRRHOSIS [None]
